FAERS Safety Report 5417479-9 (Version None)
Quarter: 2007Q3

REPORT INFORMATION
  Report Type: 
  Country: None (occurrence: None)
  Receive Date: 20070816
  Receipt Date: 20070808
  Transmission Date: 20080115
  Serious: Yes (Other)
  Sender: FDA-Public Use
  Company Number: US-TYCO HEALTHCARE/MALLINCKRODT-T200700907

PATIENT

DRUGS (5)
  1. LORTAB [Suspect]
     Indication: CANCER PAIN
     Dosage: 5 MG, QD
     Route: 048
     Dates: start: 20070720, end: 20070724
  2. LEXAPRO [Suspect]
     Indication: DEPRESSION
     Dosage: 10 MG, UNK
     Route: 048
     Dates: start: 20040101
  3. SPIRIVA [Concomitant]
  4. SEREVENT [Concomitant]
  5. CHEMOTHERAPEUTICS NOS [Concomitant]
     Indication: LUNG NEOPLASM MALIGNANT

REACTIONS (3)
  - CONFUSIONAL STATE [None]
  - DRUG INTERACTION [None]
  - DYSPNOEA [None]
